FAERS Safety Report 12654556 (Version 1)
Quarter: 2016Q3

REPORT INFORMATION
  Report Type: Report from Study
  Country: SA (occurrence: SA)
  Receive Date: 20160816
  Receipt Date: 20160816
  Transmission Date: 20161109
  Serious: Yes (Life-Threatening)
  Sender: FDA-Public Use
  Company Number: SA-ROCHE-1813507

PATIENT
  Age: 72 Year
  Sex: Male
  Weight: 106 kg

DRUGS (3)
  1. OXALIPLATIN. [Concomitant]
     Active Substance: OXALIPLATIN
  2. XELODA [Concomitant]
     Active Substance: CAPECITABINE
     Route: 065
  3. AVASTIN [Suspect]
     Active Substance: BEVACIZUMAB
     Indication: COLORECTAL CANCER
     Route: 042
     Dates: start: 200701

REACTIONS (1)
  - Metastases to lung [Unknown]
